FAERS Safety Report 16018868 (Version 1)
Quarter: 2019Q1

REPORT INFORMATION
  Report Type: Spontaneous
  Country: US (occurrence: US)
  Receive Date: 20190228
  Receipt Date: 20190228
  Transmission Date: 20190418
  Serious: No
  Sender: FDA-Public Use
  Company Number: US-SA-2019SA054708

PATIENT
  Sex: Female
  Weight: 70.3 kg

DRUGS (7)
  1. NEXIUM I.V. [Concomitant]
     Active Substance: ESOMEPRAZOLE SODIUM
  2. EMERGEN C [Concomitant]
     Active Substance: MINERALS\VITAMINS
     Indication: NASOPHARYNGITIS
  3. GAVISCON [Suspect]
     Active Substance: ALUMINUM HYDROXIDE\MAGNESIUM CARBONATE
     Indication: GASTROOESOPHAGEAL REFLUX DISEASE
     Dosage: UP TO 6 TABLETS OR MORE A NIGHT BY MOUTH
     Route: 048
  4. EMERGEN C [Concomitant]
     Active Substance: MINERALS\VITAMINS
     Indication: INFLUENZA
     Dosage: 2 TO 3 PACKETS, QD
  5. RANITIDINE. [Concomitant]
     Active Substance: RANITIDINE
     Indication: GASTROOESOPHAGEAL REFLUX DISEASE
     Dosage: 50 MG, QD
     Route: 048
  6. CHILDRENS ASPIRIN [Concomitant]
     Active Substance: ASPIRIN
     Indication: PAIN
  7. CENTRUM SILVER [ASCORBIC ACID;CALCIUM;MINERALS NOS;RETINOL;TOCOPHERYL [Concomitant]

REACTIONS (4)
  - Product use in unapproved indication [Unknown]
  - Therapeutic response unexpected [Unknown]
  - Vertigo [Unknown]
  - Product use issue [Unknown]
